FAERS Safety Report 7087769-5 (Version None)
Quarter: 2010Q4

REPORT INFORMATION
  Report Type: 
  Country: None (occurrence: None)
  Receive Date: 20101108
  Receipt Date: 20101101
  Transmission Date: 20110411
  Serious: Yes (Hospitalization, Other)
  Sender: FDA-Public Use
  Company Number: US-ELI_LILLY_AND_COMPANY-US201001003874

PATIENT
  Sex: Female
  Weight: 68.027 kg

DRUGS (10)
  1. BYETTA [Suspect]
     Dosage: UNK, UNKNOWN
     Route: 065
     Dates: start: 20070601, end: 20080201
  2. BYETTA [Suspect]
     Dosage: 5 UG, 2/D
     Route: 058
  3. BYETTA [Suspect]
     Dosage: 5 UG, 3/D
     Route: 058
  4. ROLAIDS [Concomitant]
     Indication: ANTACID THERAPY
  5. METFORMIN HCL [Concomitant]
     Dosage: 2 D/F, 2/D
  6. METFORMIN HCL [Concomitant]
     Dosage: 1000 MG, 2/D
  7. LISINOPRIL /USA/ [Concomitant]
     Dosage: 20 MG, DAILY (1/D)
  8. LEXAPRO [Concomitant]
  9. DIABETA [Concomitant]
  10. INSULIN [Concomitant]
     Dates: start: 20080201

REACTIONS (4)
  - CHOLECYSTITIS ACUTE [None]
  - DRUG PRESCRIBING ERROR [None]
  - OFF LABEL USE [None]
  - PANCREATITIS [None]
